FAERS Safety Report 17560252 (Version 1)
Quarter: 2020Q1

REPORT INFORMATION
  Report Type: Spontaneous
  Country: US (occurrence: US)
  Receive Date: 20200318
  Receipt Date: 20200318
  Transmission Date: 20200409
  Serious: Yes (Life-Threatening, Hospitalization)
  Sender: FDA-Public Use
  Company Number: None

PATIENT
  Age: 44 Year
  Sex: Male
  Weight: 103.5 kg

DRUGS (4)
  1. PALIPERIDONE INJECTION [Suspect]
     Active Substance: PALIPERIDONE PALMITATE
     Indication: SCHIZOAFFECTIVE DISORDER BIPOLAR TYPE
     Dosage: ?          OTHER FREQUENCY:MONTHLY;?
     Route: 058
  2. FISH OIL [Concomitant]
     Active Substance: FISH OIL
  3. CPAP [Concomitant]
     Active Substance: DEVICE
  4. LATUDA [Concomitant]
     Active Substance: LURASIDONE HYDROCHLORIDE

REACTIONS (3)
  - Physical assault [None]
  - Feeling abnormal [None]
  - Aggression [None]

NARRATIVE: CASE EVENT DATE: 20200309
